FAERS Safety Report 16845626 (Version 2)
Quarter: 2020Q3

REPORT INFORMATION
  Report Type: Spontaneous
  Country: US (occurrence: US)
  Receive Date: 20190924
  Receipt Date: 20200828
  Transmission Date: 20201102
  Serious: Yes (Other)
  Sender: FDA-Public Use
  Company Number: US-GILEAD-2019-0429615

PATIENT
  Age: 41 Year
  Sex: Male
  Weight: 68.03 kg

DRUGS (32)
  1. VIREAD [Suspect]
     Active Substance: TENOFOVIR DISOPROXIL FUMARATE
     Indication: HIV INFECTION
     Dosage: UNK
     Route: 048
     Dates: start: 2001, end: 2017
  2. EDURANT [Concomitant]
     Active Substance: RILPIVIRINE HYDROCHLORIDE
  3. EMTRIVA [Concomitant]
     Active Substance: EMTRICITABINE
  4. AMOXICILLIN. [Concomitant]
     Active Substance: AMOXICILLIN
  5. CARVEDILOL. [Concomitant]
     Active Substance: CARVEDILOL
  6. AMLODIPINE [Concomitant]
     Active Substance: AMLODIPINE BESYLATE
  7. BESIVANCE [Concomitant]
     Active Substance: BESIFLOXACIN
  8. JULUCA [Concomitant]
     Active Substance: DOLUTEGRAVIR SODIUM\RILPIVIRINE HYDROCHLORIDE
  9. ATOVAQUONE. [Concomitant]
     Active Substance: ATOVAQUONE
  10. NORVIR [Concomitant]
     Active Substance: RITONAVIR
  11. ACETAMINOPHEN. [Concomitant]
     Active Substance: ACETAMINOPHEN
  12. CALCIUM ACETATE. [Concomitant]
     Active Substance: CALCIUM ACETATE
  13. MYFORTIC [Concomitant]
     Active Substance: MYCOPHENOLATE SODIUM
  14. PEPCID [Concomitant]
     Active Substance: FAMOTIDINE
  15. NIFEDIPINE. [Concomitant]
     Active Substance: NIFEDIPINE
  16. TRUVADA [Suspect]
     Active Substance: EMTRICITABINE\TENOFOVIR DISOPROXIL FUMARATE
     Indication: HIV INFECTION
     Dosage: UNK
     Route: 048
     Dates: start: 2001, end: 2017
  17. SUSTIVA [Concomitant]
     Active Substance: EFAVIRENZ
  18. TIVICAY [Concomitant]
     Active Substance: DOLUTEGRAVIR SODIUM
  19. AZITHROMYCIN ANHYDROUS. [Concomitant]
     Active Substance: AZITHROMYCIN ANHYDROUS
  20. CEFALEXIN [Concomitant]
     Active Substance: CEPHALEXIN
  21. PROGRAF [Concomitant]
     Active Substance: TACROLIMUS
  22. DESCOVY [Concomitant]
     Active Substance: EMTRICITABINE\TENOFOVIR ALAFENAMIDE FUMARATE
  23. ISENTRESS [Concomitant]
     Active Substance: RALTEGRAVIR POTASSIUM
  24. CLINDAMYCIN. [Concomitant]
     Active Substance: CLINDAMYCIN
  25. COMBIVIR [Concomitant]
     Active Substance: LAMIVUDINE\ZIDOVUDINE
  26. ASPIRIN 81 [Concomitant]
     Active Substance: ASPIRIN
  27. FEXOFENADINE [Concomitant]
     Active Substance: FEXOFENADINE HYDROCHLORIDE
  28. HYDROCODONE [Concomitant]
     Active Substance: HYDROCODONE
  29. KETOCONAZOLE. [Concomitant]
     Active Substance: KETOCONAZOLE
  30. MEPRON [Concomitant]
     Active Substance: ATOVAQUONE
  31. CRESTOR [Concomitant]
     Active Substance: ROSUVASTATIN CALCIUM
  32. LEVOFLACIN [Concomitant]

REACTIONS (10)
  - Renal transplant [Unknown]
  - Economic problem [Not Recovered/Not Resolved]
  - Fatigue [Unknown]
  - Renal failure [Unknown]
  - Anhedonia [Not Recovered/Not Resolved]
  - Anxiety [Not Recovered/Not Resolved]
  - Chronic kidney disease [Not Recovered/Not Resolved]
  - Quality of life decreased [Not Recovered/Not Resolved]
  - Emotional distress [Not Recovered/Not Resolved]
  - Pain [Not Recovered/Not Resolved]

NARRATIVE: CASE EVENT DATE: 200404
